FAERS Safety Report 19856456 (Version 1)
Quarter: 2021Q3

REPORT INFORMATION
  Report Type: Spontaneous
  Country: NL (occurrence: NL)
  Receive Date: 20210920
  Receipt Date: 20210920
  Transmission Date: 20211014
  Serious: Yes (Other)
  Sender: FDA-Public Use
  Company Number: NL-MYLANLABS-2021M1062628

PATIENT
  Sex: Female
  Weight: 110 kg

DRUGS (2)
  1. PROPRANOLOL [Suspect]
     Active Substance: PROPRANOLOL HYDROCHLORIDE
     Indication: MIGRAINE
     Dosage: 1 DOSAGE FORM, QD
     Dates: start: 201501, end: 20150510
  2. MIRENA [Concomitant]
     Active Substance: LEVONORGESTREL
     Dosage: UNK

REACTIONS (30)
  - Anxiety [Recovered/Resolved]
  - Neck pain [Not Recovered/Not Resolved]
  - Dry mouth [Recovered/Resolved]
  - Apathy [Not Recovered/Not Resolved]
  - Fatigue [Not Recovered/Not Resolved]
  - Arthralgia [Not Recovered/Not Resolved]
  - Pain [Unknown]
  - Dyspnoea [Not Recovered/Not Resolved]
  - Tremor [Recovered/Resolved]
  - Hallucination [Recovered/Resolved]
  - Crying [Unknown]
  - Psychotic disorder [Recovered/Resolved]
  - Extrasystoles [Recovered/Resolved]
  - Panic attack [Recovering/Resolving]
  - Decreased appetite [Recovered/Resolved]
  - Feeling cold [Recovered/Resolved]
  - Abdominal pain upper [Recovered/Resolved]
  - Trismus [Recovered/Resolved]
  - Lacrimation increased [Recovered/Resolved]
  - Photopsia [Recovered/Resolved]
  - Abdominal pain [Recovered/Resolved]
  - Visual impairment [Not Recovered/Not Resolved]
  - Head discomfort [Not Recovered/Not Resolved]
  - Muscle tightness [Not Recovered/Not Resolved]
  - Trigeminal neuralgia [Not Recovered/Not Resolved]
  - Tooth fracture [Unknown]
  - Hyperhidrosis [Unknown]
  - Weight increased [Unknown]
  - Diarrhoea [Recovered/Resolved]
  - Insomnia [Recovering/Resolving]
